FAERS Safety Report 21400333 (Version 1)
Quarter: 2022Q3

REPORT INFORMATION
  Report Type: Spontaneous
  Country: US (occurrence: None)
  Receive Date: 20220930
  Receipt Date: 20220930
  Transmission Date: 20221027
  Serious: No
  Sender: FDA-Public Use
  Company Number: None

PATIENT
  Age: 66 Year
  Sex: Female

DRUGS (1)
  1. OPSUMIT [Suspect]
     Active Substance: MACITENTAN
     Indication: Pulmonary arterial hypertension
     Dosage: FREQUENCY : ONCE;?
     Route: 048
     Dates: start: 20220526

REACTIONS (2)
  - Pneumonia [None]
  - Blood sodium decreased [None]

NARRATIVE: CASE EVENT DATE: 20220923
